FAERS Safety Report 13039771 (Version 1)
Quarter: 2016Q4

REPORT INFORMATION
  Report Type: Spontaneous
  Country: US (occurrence: US)
  Receive Date: 20161217
  Receipt Date: 20161217
  Transmission Date: 20170207
  Serious: No
  Sender: FDA-Public Use
  Company Number: None

PATIENT
  Age: 65 Year
  Sex: Female

DRUGS (8)
  1. ACYCLOVIR. [Concomitant]
     Active Substance: ACYCLOVIR
  2. CALCIUM CARBONATE. [Concomitant]
     Active Substance: CALCIUM CARBONATE
  3. DEXAMETHASONE. [Concomitant]
     Active Substance: DEXAMETHASONE
  4. ONDANSETRON [Concomitant]
     Active Substance: ONDANSETRON
  5. REVLIMID [Suspect]
     Active Substance: LENALIDOMIDE
     Indication: PLASMA CELL MYELOMA
     Route: 048
     Dates: start: 20161116, end: 20161128
  6. FENTANYL. [Concomitant]
     Active Substance: FENTANYL
  7. ALBUTEROL. [Concomitant]
     Active Substance: ALBUTEROL
  8. SCOPOLAMINE [Concomitant]
     Active Substance: SCOPOLAMINE

REACTIONS (6)
  - Hypoaesthesia [None]
  - Nausea [None]
  - Eye pruritus [None]
  - Eye pain [None]
  - Rash [None]
  - Eye swelling [None]

NARRATIVE: CASE EVENT DATE: 20161128
